FAERS Safety Report 15515378 (Version 2)
Quarter: 2018Q4

REPORT INFORMATION
  Report Type: Spontaneous
  Country: US (occurrence: US)
  Receive Date: 20181017
  Receipt Date: 20181101
  Transmission Date: 20190205
  Serious: No
  Sender: FDA-Public Use
  Company Number: US-BIOGEN-2018BI00642907

PATIENT
  Sex: Female

DRUGS (2)
  1. TECFIDERA [Suspect]
     Active Substance: DIMETHYL FUMARATE
     Route: 048
     Dates: start: 20180806
  2. TECFIDERA [Suspect]
     Active Substance: DIMETHYL FUMARATE
     Indication: MULTIPLE SCLEROSIS
     Route: 048
     Dates: start: 20180831

REACTIONS (10)
  - Hot flush [Recovered/Resolved]
  - Cognitive disorder [Not Recovered/Not Resolved]
  - Osteoporosis [Not Recovered/Not Resolved]
  - Memory impairment [Not Recovered/Not Resolved]
  - Dysgraphia [Unknown]
  - Time perception altered [Not Recovered/Not Resolved]
  - Dysphemia [Unknown]
  - Medication error [Unknown]
  - Multiple sclerosis relapse [Unknown]
  - Aphasia [Not Recovered/Not Resolved]
